FAERS Safety Report 8256879-9 (Version None)
Quarter: 2012Q2

REPORT INFORMATION
  Report Type: 
  Country: None (occurrence: None)
  Receive Date: 20120403
  Receipt Date: 20120330
  Transmission Date: 20120825
  Serious: Yes (Life-Threatening, Hospitalization)
  Sender: FDA-Public Use
  Company Number: JP-PFIZER INC-2012044728

PATIENT
  Age: 64 Year
  Sex: Male
  Weight: 78 kg

DRUGS (1)
  1. EPLERENONE [Suspect]
     Indication: HYPERTENSION
     Dosage: 50 MG, 1X/DAY
     Route: 048
     Dates: start: 20110822, end: 20111220

REACTIONS (2)
  - SYNCOPE [None]
  - HYPERKALAEMIA [None]
